FAERS Safety Report 6301640-5 (Version None)
Quarter: 2009Q3

REPORT INFORMATION
  Report Type: 
  Country: None (occurrence: None)
  Receive Date: 20090807
  Receipt Date: 20090805
  Transmission Date: 20100115
  Serious: Yes (Death, Hospitalization)
  Sender: FDA-Public Use
  Company Number: GB-ASTRAZENECA-2009SE06803

PATIENT
  Age: 54 Year
  Sex: Male

DRUGS (1)
  1. FELODIPINE [Suspect]
     Dosage: TOTAL DOSE APPROXIMATELY 250 MG

REACTIONS (3)
  - HYPOTENSION [None]
  - METABOLIC ACIDOSIS [None]
  - OVERDOSE [None]
